FAERS Safety Report 7564972-9 (Version None)
Quarter: 2011Q2

REPORT INFORMATION
  Report Type: 
  Country: None (occurrence: None)
  Receive Date: 20110622
  Receipt Date: 20110321
  Transmission Date: 20111010
  Serious: Yes (Other)
  Sender: FDA-Public Use
  Company Number: US-MYLANLABS-2011S1004640

PATIENT
  Age: 21 Year
  Sex: Male

DRUGS (6)
  1. DEPAKOTE ER [Concomitant]
  2. CLOZAPINE [Suspect]
     Route: 048
     Dates: start: 20101223, end: 20110227
  3. CLOZAPINE [Suspect]
     Route: 048
     Dates: start: 20101223, end: 20110227
  4. CYMBALTA [Concomitant]
  5. LEVOTHYROXINE SODIUM [Concomitant]
  6. BACLOFEN [Concomitant]

REACTIONS (1)
  - GRANULOCYTOPENIA [None]
